FAERS Safety Report 5139087-X (Version None)
Quarter: 2006Q4

REPORT INFORMATION
  Report Type: 
  Country: None (occurrence: None)
  Receive Date: 20061030
  Receipt Date: 20060619
  Transmission Date: 20070319
  Serious: No
  Sender: FDA-Public Use
  Company Number: US-GLAXOSMITHKLINE-A0609549A

PATIENT
  Age: 70 Year
  Sex: Female

DRUGS (4)
  1. ADVAIR HFA [Suspect]
     Indication: ASTHMA
     Dosage: 1PUFF PER DAY
     Route: 055
     Dates: start: 20060613
  2. SYNTHROID [Concomitant]
  3. PRILOSEC [Concomitant]
  4. ALBUTEROL [Concomitant]

REACTIONS (5)
  - DYSPHONIA [None]
  - INCREASED UPPER AIRWAY SECRETION [None]
  - PAIN [None]
  - PYREXIA [None]
  - UPPER RESPIRATORY TRACT INFECTION [None]
